FAERS Safety Report 7928167-9 (Version None)
Quarter: 2011Q4

REPORT INFORMATION
  Report Type: 
  Country: None (occurrence: None)
  Receive Date: 20111118
  Receipt Date: 20111102
  Transmission Date: 20120403
  Serious: Yes (Hospitalization, Other)
  Sender: FDA-Public Use
  Company Number: DE-ROCHE-1006497

PATIENT
  Sex: Male
  Weight: 68 kg

DRUGS (5)
  1. BENDAMUSTINE [Concomitant]
     Indication: LYMPHOMA
  2. COTRIM DS [Concomitant]
     Indication: PROPHYLAXIS
     Route: 048
     Dates: start: 20100701, end: 20110819
  3. SOLU-MEDROL [Concomitant]
     Indication: PRODUCT USED FOR UNKNOWN INDICATION
     Route: 042
     Dates: start: 20100701, end: 20110819
  4. MABTHERA [Suspect]
     Indication: LYMPHOMA
     Route: 042
     Dates: start: 20100701, end: 20110819
  5. CLEMASTINE FUMARATE [Concomitant]
     Indication: PRODUCT USED FOR UNKNOWN INDICATION
     Route: 042
     Dates: start: 20100701, end: 20110819

REACTIONS (3)
  - OPTIC NEURITIS [None]
  - VISUAL IMPAIRMENT [None]
  - BLINDNESS [None]
